FAERS Safety Report 19818236 (Version 1)
Quarter: 2021Q3

REPORT INFORMATION
  Report Type: Spontaneous
  Country: IN (occurrence: IN)
  Receive Date: 20210911
  Receipt Date: 20210911
  Transmission Date: 20211014
  Serious: Yes (Hospitalization, Other)
  Sender: FDA-Public Use
  Company Number: IN-LUPIN PHARMACEUTICALS INC.-2021-17009

PATIENT
  Age: 40 Year
  Sex: Male

DRUGS (2)
  1. METRONIDAZOLE. [Suspect]
     Active Substance: METRONIDAZOLE
     Dosage: 800 MILLIGRAM, TID
     Route: 048
  2. METRONIDAZOLE. [Suspect]
     Active Substance: METRONIDAZOLE
     Indication: HEPATIC AMOEBIASIS
     Dosage: 2500 MILLIGRAM, QD (IN DIVIDED DOSES)
     Route: 042

REACTIONS (4)
  - Neurotoxicity [Recovering/Resolving]
  - Nervous system disorder [Recovering/Resolving]
  - Neuropathy peripheral [Recovering/Resolving]
  - Toxic encephalopathy [Recovering/Resolving]
